FAERS Safety Report 17394330 (Version 1)
Quarter: 2020Q1

REPORT INFORMATION
  Report Type: Spontaneous
  Country: GB (occurrence: GB)
  Receive Date: 20200210
  Receipt Date: 20200210
  Transmission Date: 20200409
  Serious: Yes (Life-Threatening)
  Sender: FDA-Public Use
  Company Number: GB-SUN PHARMACEUTICAL INDUSTRIES LTD-2020RR-235890

PATIENT
  Age: 42 Year
  Sex: Male
  Weight: 59.55 kg

DRUGS (1)
  1. OLANZAPINE. [Suspect]
     Active Substance: OLANZAPINE
     Indication: SCHIZOPHRENIA
     Dosage: 20 MILLIGRAM, DAILY
     Route: 048

REACTIONS (5)
  - Left ventricular dysfunction [Unknown]
  - Bundle branch block left [Unknown]
  - Cardiac arrest [Recovered/Resolved]
  - Electrocardiogram QT prolonged [Unknown]
  - Congestive cardiomyopathy [Recovered/Resolved with Sequelae]

NARRATIVE: CASE EVENT DATE: 1998
